FAERS Safety Report 5048596-3 (Version None)
Quarter: 2006Q2

REPORT INFORMATION
  Report Type: 
  Country: None (occurrence: None)
  Receive Date: 20060601
  Receipt Date: 20060215
  Transmission Date: 20061013
  Serious: No
  Sender: FDA-Public Use
  Company Number: 2006PV008763

PATIENT
  Age: 53 Year
  Sex: Male
  Weight: 112.0385 kg

DRUGS (6)
  1. BYETTA [Suspect]
     Indication: DIABETES MELLITUS NON-INSULIN-DEPENDENT
     Dosage: SEE IMAGE
     Route: 058
     Dates: start: 20050901, end: 20060101
  2. BYETTA [Suspect]
     Indication: DIABETES MELLITUS NON-INSULIN-DEPENDENT
     Dosage: SEE IMAGE
     Route: 058
     Dates: start: 20060101
  3. AVANDIA [Concomitant]
  4. METFORMIN [Concomitant]
  5. GLIPIZIDE [Concomitant]
  6. ENALAPRIL MALEATE [Concomitant]

REACTIONS (2)
  - INJECTION SITE BRUISING [None]
  - INJECTION SITE HAEMORRHAGE [None]
